FAERS Safety Report 10602821 (Version 1)
Quarter: 2014Q4

REPORT INFORMATION
  Report Type: Spontaneous
  Country: US (occurrence: US)
  Receive Date: 20141124
  Receipt Date: 20141124
  Transmission Date: 20150529
  Serious: No
  Sender: FDA-Public Use
  Company Number: US-NOVEN-14US010369

PATIENT
  Age: 62 Year
  Sex: Female

DRUGS (2)
  1. MINIVELLE [Suspect]
     Active Substance: ESTRADIOL
     Indication: BONE DENSITY DECREASED
     Dosage: 0.0375 MG/DAY, UNK
     Route: 062
     Dates: start: 201408, end: 201409
  2. MINIVELLE [Suspect]
     Active Substance: ESTRADIOL
     Dosage: 0.05 MG/DAY, UNK
     Route: 062
     Dates: start: 2014, end: 2014

REACTIONS (8)
  - Vulvovaginal discomfort [Recovered/Resolved]
  - Muscular weakness [Recovered/Resolved]
  - Drug prescribing error [Recovered/Resolved]
  - Feeling abnormal [Unknown]
  - Drug effect increased [Recovered/Resolved]
  - Weight decreased [Unknown]
  - Off label use [Recovered/Resolved]
  - Metrorrhagia [Recovered/Resolved]

NARRATIVE: CASE EVENT DATE: 2014
